FAERS Safety Report 9000144 (Version 2)
Quarter: 2013Q1

REPORT INFORMATION
  Report Type: Report from Study
  Country: US (occurrence: US)
  Receive Date: 20130102
  Receipt Date: 20130109
  Transmission Date: 20140127
  Serious: No
  Sender: FDA-Public Use
  Company Number: US-VERTEX PHARMACEUTICALS INC.-2012-026798

PATIENT
  Sex: Male
  Weight: 83 kg

DRUGS (8)
  1. VX-950 (TELAPREVIR) [Suspect]
     Indication: HEPATITIS C
     Dosage: 750 MG, TID
     Route: 048
     Dates: start: 20121106
  2. PEGASYS [Suspect]
     Indication: HEPATITIS C
     Dosage: UNK
     Dates: start: 20121106
  3. RIBAVIRIN [Suspect]
     Indication: HEPATITIS C
     Dosage: 200 MG, UNK
     Dates: start: 20121106
  4. HYDROXYZINE PAM [Concomitant]
     Dosage: 25 MG, UNK
  5. NORVASC [Concomitant]
     Dosage: 10 MG, UNK
  6. FLAXSEED OIL [Concomitant]
  7. MULTIVITAMIN                       /00097801/ [Concomitant]
  8. IBUPROFEN [Concomitant]

REACTIONS (6)
  - Oral mucosal blistering [Recovered/Resolved]
  - Blood potassium decreased [Unknown]
  - Anaemia [Unknown]
  - Pruritus [Unknown]
  - Anorectal discomfort [Recovered/Resolved]
  - Nausea [Recovered/Resolved]
